FAERS Safety Report 22219219 (Version 1)
Quarter: 2023Q2

REPORT INFORMATION
  Report Type: Spontaneous
  Country: IL (occurrence: IL)
  Receive Date: 20230417
  Receipt Date: 20230417
  Transmission Date: 20230721
  Serious: Yes (Hospitalization, Other)
  Sender: FDA-Public Use
  Company Number: IL-SA-SAC20230413000034

PATIENT
  Sex: Female

DRUGS (5)
  1. ENOXAPARIN SODIUM [Suspect]
     Active Substance: ENOXAPARIN SODIUM
     Dosage: 120 MG
     Route: 065
  2. LEVOTHYROXINE [Concomitant]
     Active Substance: LEVOTHYROXINE
  3. AMIODARONE HYDROCHLORIDE [Concomitant]
     Active Substance: AMIODARONE HYDROCHLORIDE
  4. AEROVENT [BUDESONIDE] [Concomitant]
  5. BUDECORT RESPULES [Concomitant]
     Dosage: 0.5 MG/2 ML

REACTIONS (6)
  - Abdominal pain [Unknown]
  - Chronic obstructive pulmonary disease [Unknown]
  - COVID-19 [Unknown]
  - SARS-CoV-2 test positive [Unknown]
  - Retroperitoneal haemorrhage [Unknown]
  - Haemoglobin decreased [Unknown]

NARRATIVE: CASE EVENT DATE: 20230409
